FAERS Safety Report 9180826 (Version 2)
Quarter: 2013Q2

REPORT INFORMATION
  Report Type: Spontaneous
  Country: US (occurrence: US)
  Receive Date: 20130322
  Receipt Date: 20130508
  Transmission Date: 20140414
  Serious: Yes (Other)
  Sender: FDA-Public Use
  Company Number: US-JNJFOC-20130307582

PATIENT
  Age: 72 Year
  Sex: Male
  Weight: 75.3 kg

DRUGS (19)
  1. REMICADE [Suspect]
     Indication: COLITIS ULCERATIVE
     Route: 042
     Dates: start: 20120301
  2. REMICADE [Suspect]
     Indication: COLITIS ULCERATIVE
     Route: 042
     Dates: start: 20130308
  3. LISINOPRIL [Concomitant]
     Route: 048
  4. METOPROLOL [Concomitant]
     Route: 065
  5. SIMVASTATIN [Concomitant]
     Dosage: AT BEDTIME
     Route: 048
  6. BABY ASPIRIN [Concomitant]
     Dosage: AT BEDTIME
     Route: 048
  7. ALEVE [Concomitant]
     Dosage: PRN
     Route: 065
  8. AXIRON [Concomitant]
     Dosage: 1.5 ML/ACTUATION 2 PUMP AXILLARY TWICE A DAY
     Route: 065
  9. CIPROFLOXACIN [Concomitant]
     Dosage: PRN
     Route: 065
  10. METOPROLOL TARTRAT [Concomitant]
     Dosage: 12.5
     Route: 048
  11. ALKA SELTZER [Concomitant]
     Dosage: PRN
     Route: 065
  12. METRONIDAZOLE [Concomitant]
     Dosage: PRN
     Route: 065
  13. FISH OIL [Concomitant]
     Dosage: 120-180 MG
     Route: 048
  14. CITRACAL [Concomitant]
     Dosage: 250-200 MG
     Route: 048
  15. PREDNISONE [Concomitant]
     Dosage: 1 PO FOR 3 DAYS
     Route: 048
  16. OCUVITE NOS [Concomitant]
     Dosage: 150-30-6-150 MG-UNIT-MG
     Route: 048
  17. PEPTO-BISMOL [Concomitant]
     Dosage: PRN
     Route: 065
  18. VITAMIN B12 [Concomitant]
     Route: 030
  19. MULTIVITAMINS [Concomitant]
     Route: 065

REACTIONS (10)
  - Arthralgia [Recovering/Resolving]
  - Diarrhoea [Recovering/Resolving]
  - Pyrexia [Recovering/Resolving]
  - Myalgia [Recovering/Resolving]
  - Flatulence [Recovering/Resolving]
  - Abdominal distension [Recovering/Resolving]
  - Abdominal pain upper [Recovering/Resolving]
  - Increased tendency to bruise [Recovering/Resolving]
  - Joint stiffness [Not Recovered/Not Resolved]
  - Headache [Recovered/Resolved]
